FAERS Safety Report 15271756 (Version 1)
Quarter: 2018Q3

REPORT INFORMATION
  Report Type: Spontaneous
  Country: US (occurrence: US)
  Receive Date: 20180727
  Receipt Date: 20180727
  Transmission Date: 20181010
  Serious: Yes (Life-Threatening, Hospitalization, Other)
  Sender: FDA-Public Use
  Company Number: None

PATIENT
  Age: 77 Year
  Sex: Male
  Weight: 54 kg

DRUGS (3)
  1. DEXAMETHASONE 10MG IV ONCE PREMEDICATION [Concomitant]
     Dates: start: 20180726, end: 20180726
  2. DIPHENHYDRAMINE 25 MG IV ONCE PREMEDICATION [Concomitant]
  3. CETUXIMAB. [Suspect]
     Active Substance: CETUXIMAB
     Indication: LARYNGEAL CANCER
     Route: 041

REACTIONS (3)
  - Dyspnoea [None]
  - Tachycardia [None]
  - Anaphylactic shock [None]

NARRATIVE: CASE EVENT DATE: 20180726
